FAERS Safety Report 4366022-4 (Version None)
Quarter: 2004Q2

REPORT INFORMATION
  Report Type: 
  Country: None (occurrence: None)
  Receive Date: 20040527
  Receipt Date: 20040519
  Transmission Date: 20050107
  Serious: Yes (Hospitalization)
  Sender: FDA-Public Use
  Company Number: US-BRISTOL-MYERS SQUIBB COMPANY-12591327

PATIENT
  Age: 83 Year
  Sex: Female

DRUGS (6)
  1. CAPTOPRIL [Suspect]
     Indication: CARDIAC FAILURE
  2. NITROGLYCERIN [Suspect]
     Indication: HYPERTENSION
     Route: 042
  3. LASIX [Suspect]
     Indication: CARDIAC FAILURE
  4. ENOXAPARIN SODIUM [Concomitant]
     Indication: MYOCARDIAL INFARCTION
  5. ASPIRIN [Concomitant]
     Indication: MYOCARDIAL INFARCTION
  6. AMPICILLIN SODIUM/SULBACTAM SODIUM [Concomitant]
     Indication: PNEUMONIA

REACTIONS (1)
  - HYPOTENSION [None]
